FAERS Safety Report 4545657-X (Version None)
Quarter: 2004Q4

REPORT INFORMATION
  Report Type: 
  Country: None (occurrence: None)
  Receive Date: 20041223
  Receipt Date: 20040824
  Transmission Date: 20050328
  Serious: No
  Sender: FDA-Public Use
  Company Number: US-JNJFOC-20040808392

PATIENT
  Age: 21 Year
  Sex: Female
  Weight: 69.8539 kg

DRUGS (2)
  1. ORTHO EVRA (NOREGESTROMIN/ETHINYL ESTRADIOL) PATCH [Suspect]
     Indication: CONTRACEPTION
     Dosage: 1 DOSE(S), 3 IN 4 WEEK, TRANSDERMAL
     Route: 062
     Dates: start: 20020101
  2. DOXYCYCLINE [Concomitant]

REACTIONS (3)
  - AMENORRHOEA [None]
  - BREAST MASS [None]
  - CYSTITIS [None]
